FAERS Safety Report 6782652-4 (Version None)
Quarter: 2010Q2

REPORT INFORMATION
  Report Type: 
  Country: None (occurrence: None)
  Receive Date: 20100621
  Receipt Date: 20100617
  Transmission Date: 20101027
  Serious: Yes (Death, Disabling, Other)
  Sender: FDA-Public Use
  Company Number: PHBS2009CA00751

PATIENT
  Age: 39 Year
  Sex: Female

DRUGS (7)
  1. CYCLOSPORINE [Suspect]
     Indication: STEM CELL TRANSPLANT
  2. CYCLOSPORINE [Suspect]
     Indication: PROPHYLAXIS AGAINST GRAFT VERSUS HOST DISEASE
  3. MYCOPHENOLATE MOFETIL [Suspect]
  4. BUSULFEX [Concomitant]
     Indication: PROPHYLAXIS AGAINST GRAFT VERSUS HOST DISEASE
  5. FLUDARABINE PHOSPHATE [Concomitant]
     Indication: PROPHYLAXIS AGAINST GRAFT VERSUS HOST DISEASE
  6. ANTITHYMOCYTE IMMUNOGLOBULIN [Concomitant]
     Indication: PROPHYLAXIS AGAINST GRAFT VERSUS HOST DISEASE
  7. METHOTREXATE SODIUM [Concomitant]
     Indication: PROPHYLAXIS AGAINST GRAFT VERSUS HOST DISEASE

REACTIONS (11)
  - ACUTE GRAFT VERSUS HOST DISEASE [None]
  - ADENOVIRAL HEPATITIS [None]
  - CLONUS [None]
  - DEMYELINATION [None]
  - DIFFUSE AXONAL INJURY [None]
  - HEPATIC NECROSIS [None]
  - INFLAMMATION [None]
  - MULTI-ORGAN FAILURE [None]
  - NEURALGIA [None]
  - PARAESTHESIA [None]
  - RELAPSING-REMITTING MULTIPLE SCLEROSIS [None]
